FAERS Safety Report 4909502-2 (Version None)
Quarter: 2006Q1

REPORT INFORMATION
  Report Type: 
  Country: None (occurrence: None)
  Receive Date: 20060208
  Receipt Date: 20060208
  Transmission Date: 20060701
  Serious: Yes (Hospitalization)
  Sender: FDA-Public Use
  Company Number: None

PATIENT
  Sex: Male
  Weight: 95.2554 kg

DRUGS (12)
  1. ETODOLAC [Suspect]
     Indication: PAIN
     Dosage: 400 MG BID PRN
     Dates: start: 20020712, end: 20051014
  2. ATENOLOL [Concomitant]
  3. BACITRACIN [Concomitant]
  4. BUMETANIDE [Concomitant]
  5. GAUZE PAD [Concomitant]
  6. ISOSORBIDE DINITRATE [Concomitant]
  7. LISINOPRIL [Concomitant]
  8. PRAZOSIN HCL [Concomitant]
  9. PROPOXYPHENE N [Concomitant]
  10. QUININE SULFATE [Concomitant]
  11. TAPE, PAPER [Concomitant]
  12. ZINC OXIDE [Concomitant]

REACTIONS (3)
  - BLOOD SODIUM DECREASED [None]
  - OEDEMA [None]
  - THROMBOCYTOPENIA [None]
